FAERS Safety Report 20553205 (Version 1)
Quarter: 2022Q1

REPORT INFORMATION
  Report Type: Spontaneous
  Country: US (occurrence: None)
  Receive Date: 20220304
  Receipt Date: 20220304
  Transmission Date: 20220423
  Serious: No
  Sender: FDA-Public Use
  Company Number: None

PATIENT
  Age: 40 Year
  Sex: Female
  Weight: 160 kg

DRUGS (1)
  1. SUMATRIPTAN SUCCINATE [Suspect]
     Active Substance: SUMATRIPTAN SUCCINATE
     Dates: start: 20191118, end: 20211223

REACTIONS (4)
  - Angiopathy [None]
  - Headache [None]
  - Photophobia [None]
  - Phonophobia [None]

NARRATIVE: CASE EVENT DATE: 20211223
